FAERS Safety Report 5216167-1 (Version None)
Quarter: 2007Q1

REPORT INFORMATION
  Report Type: 
  Country: None (occurrence: None)
  Receive Date: 20070123
  Receipt Date: 20070111
  Transmission Date: 20070707
  Serious: Yes (Disabling, Other)
  Sender: FDA-Public Use
  Company Number: US-PFIZER INC-2006113626

PATIENT
  Sex: Female
  Weight: 62.6 kg

DRUGS (10)
  1. DILANTIN [Suspect]
     Indication: CONVULSION
  2. DILANTIN [Suspect]
     Indication: EPILEPSY
  3. NEURONTIN [Suspect]
     Indication: CONVULSION
  4. NORVASC [Suspect]
     Indication: HYPERTENSION
  5. LYRICA [Suspect]
     Indication: CONVULSION
  6. NAPROSYN [Suspect]
  7. GABITRIL [Concomitant]
  8. CLONAZEPAM [Concomitant]
  9. KLOR-CON [Concomitant]
  10. SYNTHROID [Concomitant]

REACTIONS (16)
  - BASEDOW'S DISEASE [None]
  - BLOOD DISORDER [None]
  - CATARACT [None]
  - COMA [None]
  - CONVULSION [None]
  - CORNEAL DISORDER [None]
  - EUPHORIC MOOD [None]
  - FEELING DRUNK [None]
  - LOSS OF CONSCIOUSNESS [None]
  - MEMORY IMPAIRMENT [None]
  - SEPSIS [None]
  - SLEEP APNOEA SYNDROME [None]
  - STATUS EPILEPTICUS [None]
  - SWEAT GLAND DISORDER [None]
  - VISION BLURRED [None]
  - VISUAL ACUITY REDUCED [None]
